FAERS Safety Report 4778447-3 (Version None)
Quarter: 2005Q3

REPORT INFORMATION
  Report Type: 
  Country: None (occurrence: None)
  Receive Date: 20050926
  Receipt Date: 20050912
  Transmission Date: 20060218
  Serious: Yes (Hospitalization)
  Sender: FDA-Public Use
  Company Number: 2005AP04864

PATIENT
  Age: 24762 Day
  Sex: Female

DRUGS (14)
  1. IRESSA [Suspect]
     Indication: NON-SMALL CELL LUNG CANCER
     Route: 048
     Dates: start: 20041223
  2. ASPIRIN [Concomitant]
     Route: 048
     Dates: start: 20050101
  3. NYSTATIN [Concomitant]
     Indication: CANDIDIASIS
     Route: 048
     Dates: start: 20031201
  4. PARACETAMOL [Concomitant]
     Indication: ANALGESIC EFFECT
     Route: 048
     Dates: start: 20030811
  5. ESTRADIOL [Concomitant]
     Indication: MENOPAUSE
     Route: 061
     Dates: start: 19950101
  6. SPIRONOLACTONE [Concomitant]
     Indication: PLEURAL EFFUSION
     Route: 048
     Dates: start: 20020101
  7. TEMAZEPAM [Concomitant]
     Indication: INSOMNIA
     Route: 048
     Dates: start: 20050107
  8. LORAZEPAM [Concomitant]
     Indication: ANXIETY
     Route: 048
     Dates: start: 20040601
  9. METOCLOPRAMIDE [Concomitant]
     Indication: NAUSEA
     Route: 048
     Dates: start: 20040301
  10. LOPERAMIDE [Concomitant]
     Indication: DIARRHOEA
     Route: 048
     Dates: start: 20050120
  11. OXYCODONE HCL [Concomitant]
     Indication: ANALGESIC EFFECT
     Route: 048
     Dates: start: 20050307
  12. CALCIUM CARBONATE [Concomitant]
     Indication: OSTEOPOROSIS
     Route: 048
     Dates: start: 20050314
  13. AMOXICILLIN [Concomitant]
     Indication: INFECTION
     Route: 048
     Dates: start: 20050315
  14. FLUCONAZOLE [Concomitant]
     Indication: CANDIDIASIS
     Route: 048
     Dates: start: 20050311

REACTIONS (8)
  - DEEP VEIN THROMBOSIS [None]
  - DISEASE RECURRENCE [None]
  - HAEMATOCRIT DECREASED [None]
  - HAEMOGLOBIN DECREASED [None]
  - INFECTION [None]
  - LOWER RESPIRATORY TRACT INFECTION [None]
  - PLATELET COUNT DECREASED [None]
  - PROTHROMBIN TIME PROLONGED [None]
